FAERS Safety Report 9013592 (Version 1)
Quarter: 2013Q1

REPORT INFORMATION
  Report Type: Spontaneous
  Country: US (occurrence: None)
  Receive Date: 20130107
  Receipt Date: 20130107
  Transmission Date: 20140127
  Serious: Yes (Other)
  Sender: FDA-Public Use
  Company Number: None

PATIENT
  Age: 56 Year
  Sex: Female
  Weight: 64.86 kg

DRUGS (2)
  1. HUMIRA [Suspect]
     Indication: CROHN^S DISEASE
     Dosage: HUMIRA Q2WKS SQ
     Route: 058
     Dates: start: 20120828, end: 20121217
  2. REMICADE [Suspect]
     Indication: CROHN^S DISEASE
     Dosage: REMICADE AT0, 2, 6WKS, Q8WKS IV
     Route: 042
     Dates: start: 20120105, end: 20120802

REACTIONS (1)
  - Tuberculin test positive [None]
